FAERS Safety Report 5630918-3 (Version None)
Quarter: 2008Q1

REPORT INFORMATION
  Report Type: 
  Country: None (occurrence: None)
  Receive Date: 20080219
  Receipt Date: 20080208
  Transmission Date: 20080703
  Serious: Yes (Disabling)
  Sender: FDA-Public Use
  Company Number: GB-BAUSCH-2008BL000546

PATIENT
  Age: 68 Year
  Sex: Female
  Weight: 60 kg

DRUGS (12)
  1. PREDNISOLONE [Suspect]
     Indication: DRUG USE FOR UNKNOWN INDICATION
  2. HUMIRA /USA/ [Suspect]
     Indication: RHEUMATOID ARTHRITIS
     Route: 058
     Dates: start: 20060601
  3. ADALAT [Concomitant]
     Indication: DRUG USE FOR UNKNOWN INDICATION
  4. ACETYL SALICYLIC ACID COMPOUND TAB [Concomitant]
     Indication: DRUG USE FOR UNKNOWN INDICATION
  5. DAKTACORT [Concomitant]
     Indication: DRUG USE FOR UNKNOWN INDICATION
  6. DICLOFENAC SODIUM [Concomitant]
     Indication: DRUG USE FOR UNKNOWN INDICATION
  7. FERROUS SULFATE TAB [Concomitant]
     Indication: DRUG USE FOR UNKNOWN INDICATION
  8. FOLIC ACID [Concomitant]
     Indication: DRUG USE FOR UNKNOWN INDICATION
  9. INDAPAMIDE [Concomitant]
     Indication: DRUG USE FOR UNKNOWN INDICATION
  10. METHOTREXATE [Concomitant]
     Indication: DRUG USE FOR UNKNOWN INDICATION
  11. OMEPRAZOLE [Concomitant]
     Indication: DRUG USE FOR UNKNOWN INDICATION
  12. SIMVASTATIN [Concomitant]
     Indication: DRUG USE FOR UNKNOWN INDICATION

REACTIONS (4)
  - FOLLICULITIS [None]
  - PAIN [None]
  - RASH MACULO-PAPULAR [None]
  - URTICARIA [None]
